FAERS Safety Report 6295110-0 (Version None)
Quarter: 2009Q3

REPORT INFORMATION
  Report Type: 
  Country: None (occurrence: None)
  Receive Date: 20090731
  Receipt Date: 20090731
  Transmission Date: 20100115
  Serious: Yes (Life-Threatening, Hospitalization)
  Sender: FDA-Public Use
  Company Number: None

PATIENT
  Age: 55 Year

DRUGS (2)
  1. VANCOMYCIN [Suspect]
     Indication: OSTEOMYELITIS
     Dosage: 1 GM BID IV
     Route: 042
     Dates: start: 20090608, end: 20090716
  2. PIPERACILLIN SODIUM AND TAZOBACTAM SODIUM [Suspect]
     Indication: OSTEOMYELITIS
     Dosage: 3.375 GM OTHER IV
     Route: 042
     Dates: start: 20090608, end: 20090716

REACTIONS (5)
  - DEHYDRATION [None]
  - HAEMODIALYSIS [None]
  - NAUSEA [None]
  - RENAL FAILURE ACUTE [None]
  - VOMITING [None]
